FAERS Safety Report 17995631 (Version 3)
Quarter: 2020Q3

REPORT INFORMATION
  Report Type: Spontaneous
  Country: US (occurrence: US)
  Receive Date: 20200708
  Receipt Date: 20200804
  Transmission Date: 20201103
  Serious: Yes (Other)
  Sender: FDA-Public Use
  Company Number: US-BAYER-2020-134409

PATIENT
  Sex: Female

DRUGS (1)
  1. CIPRO [Suspect]
     Active Substance: CIPROFLOXACIN HYDROCHLORIDE
     Indication: COLONIC ABSCESS
     Dosage: UNK
     Dates: start: 2005

REACTIONS (4)
  - Oesophageal discomfort [None]
  - Aortic rupture [None]
  - Rotator cuff syndrome [None]
  - Pain [None]
